FAERS Safety Report 5488852-8 (Version None)
Quarter: 2007Q4

REPORT INFORMATION
  Report Type: 
  Country: None (occurrence: None)
  Receive Date: 20071017
  Receipt Date: 20071005
  Transmission Date: 20080405
  Serious: Yes (Other)
  Sender: FDA-Public Use
  Company Number: MX-PFIZER INC-2007084137

PATIENT
  Sex: Female
  Weight: 70 kg

DRUGS (7)
  1. CELEBREX [Suspect]
     Indication: PAIN
     Route: 048
     Dates: start: 20070812, end: 20070928
  2. NOVOTIRAL [Concomitant]
     Route: 048
  3. VYTORIN [Concomitant]
     Route: 048
  4. ACETYLSALICYLIC ACID [Concomitant]
     Route: 048
  5. LEXOTAN [Concomitant]
     Route: 048
  6. CALCIUM [Concomitant]
     Route: 048
  7. OMEPRAZOLE [Concomitant]
     Route: 048

REACTIONS (9)
  - ABDOMINAL PAIN [None]
  - ANXIETY [None]
  - CONFUSIONAL STATE [None]
  - DYSGEUSIA [None]
  - INSOMNIA [None]
  - LENTICULAR OPACITIES [None]
  - PALPITATIONS [None]
  - PHOTOSENSITIVITY REACTION [None]
  - VISION BLURRED [None]
